FAERS Safety Report 22525584 (Version 1)
Quarter: 2023Q2

REPORT INFORMATION
  Report Type: Other
  Country: None (occurrence: NL)
  Receive Date: 20230606
  Receipt Date: 20230606
  Transmission Date: 20230722
  Serious: Yes (Hospitalization)
  Sender: FDA-Public Use
  Company Number: NL-Spectra Medical Devices, LLC-2142371

PATIENT
  Age: 24 Day
  Sex: Male
  Weight: 3 kg

DRUGS (1)
  1. SODIUM CHLORIDE [Suspect]
     Active Substance: SODIUM CHLORIDE
     Indication: Enterocolitis
     Route: 054

REACTIONS (1)
  - Acidosis hyperchloraemic [Recovered/Resolved]
